FAERS Safety Report 14046358 (Version 1)
Quarter: 2017Q4

REPORT INFORMATION
  Report Type: Spontaneous
  Country: GB (occurrence: GB)
  Receive Date: 20171005
  Receipt Date: 20171005
  Transmission Date: 20180321
  Serious: Yes (Death)
  Sender: FDA-Public Use
  Company Number: GB-AUROBINDO-AUR-APL-2017-41440

PATIENT

DRUGS (4)
  1. ABACAVIR+LAMIVUDINE MILPHARM 600/300 MG FILM COATED TABLET [Suspect]
     Active Substance: ABACAVIR\LAMIVUDINE
     Indication: ACUTE HIV INFECTION
     Dosage: 1 DF, ONCE A DAY
     Route: 064
     Dates: start: 20170901
  2. PREGNACARE                         /02357101/ [Concomitant]
     Indication: PRODUCT USED FOR UNKNOWN INDICATION
     Route: 065
  3. FERROUS SULFATE. [Concomitant]
     Active Substance: FERROUS SULFATE
     Indication: PRODUCT USED FOR UNKNOWN INDICATION
     Route: 065
  4. EFAVIRENZ FILM-COATED TABLET [Suspect]
     Active Substance: EFAVIRENZ
     Indication: ACUTE HIV INFECTION
     Dosage: 600 MG, ONCE A DAY
     Route: 064
     Dates: start: 20170901

REACTIONS (3)
  - Maternal drugs affecting foetus [None]
  - Death neonatal [Fatal]
  - Premature baby [Not Recovered/Not Resolved]

NARRATIVE: CASE EVENT DATE: 20170906
